FAERS Safety Report 18721482 (Version 1)
Quarter: 2021Q1

REPORT INFORMATION
  Report Type: Spontaneous
  Country: US (occurrence: US)
  Receive Date: 20210110
  Receipt Date: 20210110
  Transmission Date: 20210419
  Serious: Yes (Other)
  Sender: FDA-Public Use
  Company Number: US-TORRENT-00010627

PATIENT
  Age: 20 Year
  Sex: Female

DRUGS (2)
  1. LEVETIRACETAM. [Suspect]
     Active Substance: LEVETIRACETAM
     Indication: EPILEPSY
     Dosage: UNKNOWN
  2. TOPIRAMATE. [Suspect]
     Active Substance: TOPIRAMATE
     Indication: EPILEPSY
     Dosage: UNKNOWN

REACTIONS (3)
  - Acute kidney injury [Recovering/Resolving]
  - IgA nephropathy [Recovering/Resolving]
  - Tubulointerstitial nephritis [Recovering/Resolving]
